FAERS Safety Report 5698437-6 (Version None)
Quarter: 2008Q2

REPORT INFORMATION
  Report Type: 
  Country: None (occurrence: None)
  Receive Date: 20080408
  Receipt Date: 20060824
  Transmission Date: 20081010
  Serious: Yes (Other)
  Sender: FDA-Public Use
  Company Number: US-BAYER-US-2004-029819

PATIENT
  Age: 74 Year
  Sex: Female
  Weight: 54 kg

DRUGS (6)
  1. CLIMARA [Suspect]
     Indication: OSTEOPOROSIS
     Route: 062
  2. PREMARIN [Suspect]
     Indication: HORMONE REPLACEMENT THERAPY
  3. PROVERA [Suspect]
     Indication: HORMONE REPLACEMENT THERAPY
  4. PREMPRO [Suspect]
     Indication: HORMONE REPLACEMENT THERAPY
  5. ESTROGEN NOS [Suspect]
     Indication: HORMONE REPLACEMENT THERAPY
  6. MPA [Suspect]
     Indication: HORMONE REPLACEMENT THERAPY

REACTIONS (3)
  - BREAST CANCER FEMALE [None]
  - DEPRESSION [None]
  - STRESS [None]
